FAERS Safety Report 6232962-4 (Version None)
Quarter: 2009Q2

REPORT INFORMATION
  Report Type: 
  Country: None (occurrence: None)
  Receive Date: 20090615
  Receipt Date: 20090615
  Transmission Date: 20091009
  Serious: Yes (Life-Threatening, Hospitalization, Disabling)
  Sender: FDA-Public Use
  Company Number: None

PATIENT
  Age: 71 Year
  Sex: Female
  Weight: 59.8748 kg

DRUGS (1)
  1. CEPHALEXIN [Suspect]
     Indication: SKIN ULCER
     Dosage: 500 MG ONE TIME
     Dates: start: 20080420

REACTIONS (3)
  - ANAPHYLACTIC REACTION [None]
  - CARDIAC DISORDER [None]
  - LUNG DISORDER [None]
